FAERS Safety Report 8896068 (Version 2)
Quarter: 2012Q4

REPORT INFORMATION
  Report Type: 
  Country: FR (occurrence: FR)
  Receive Date: 20121108
  Receipt Date: 20121224
  Transmission Date: 20130627
  Serious: Yes (Death)
  Sender: FDA-Public Use
  Company Number: FR-ROCHE-1153519

PATIENT
  Age: 70 Year
  Sex: Female
  Weight: 45 kg

DRUGS (5)
  1. AVASTIN [Suspect]
     Indication: BREAST CANCER
     Route: 042
     Dates: start: 20120808, end: 20120829
  2. TAXOL [Concomitant]
     Indication: BREAST CANCER
     Route: 042
     Dates: start: 20120704, end: 20120820
  3. POLARAMINE [Concomitant]
     Route: 042
     Dates: start: 20120704, end: 20120829
  4. RANIPLEX [Concomitant]
     Route: 042
     Dates: start: 20120704, end: 20120829
  5. SOLU-MEDROL [Concomitant]
     Route: 065
     Dates: start: 20120704, end: 20120829

REACTIONS (2)
  - Hepatitis fulminant [Fatal]
  - Hepatic encephalopathy [Fatal]
